FAERS Safety Report 6772131-2 (Version None)
Quarter: 2010Q2

REPORT INFORMATION
  Report Type: 
  Country: None (occurrence: None)
  Receive Date: 20100616
  Receipt Date: 20100607
  Transmission Date: 20101027
  Serious: Yes (Other)
  Sender: FDA-Public Use
  Company Number: B0660088A

PATIENT
  Sex: Female

DRUGS (2)
  1. PAXIL [Suspect]
     Dosage: 10MG PER DAY
  2. ETHYL LOFLAZEPATE [Suspect]
     Dosage: 1MG PER DAY

REACTIONS (9)
  - DRUG EXPOSURE DURING PREGNANCY [None]
  - DRUG WITHDRAWAL SYNDROME NEONATAL [None]
  - HYPERAEMIA [None]
  - HYPOTHERMIA NEONATAL [None]
  - INFANTILE APNOEIC ATTACK [None]
  - IRRITABILITY [None]
  - LACTATION DISORDER [None]
  - NEONATAL TACHYPNOEA [None]
  - VOMITING NEONATAL [None]
